FAERS Safety Report 7588039-9 (Version None)
Quarter: 2011Q3

REPORT INFORMATION
  Report Type: 
  Country: None (occurrence: None)
  Receive Date: 20110705
  Receipt Date: 20110629
  Transmission Date: 20111222
  Serious: No
  Sender: FDA-Public Use
  Company Number: US-PFIZER INC-2011145641

PATIENT
  Sex: Male
  Weight: 86.17 kg

DRUGS (12)
  1. PLAVIX [Concomitant]
     Dosage: 75 MG, 1X/DAY
  2. WELLBUTRIN [Concomitant]
     Dosage: 15 MG, 2X/DAY
  3. IRON [Concomitant]
     Dosage: 28 MG, 1X/DAY
  4. XANAX [Concomitant]
     Dosage: 0.5 MG, AS NEEDED
  5. CLONIDINE [Concomitant]
     Indication: HYPERTENSION
     Dosage: 0.1 MG, 1X/DAY
  6. COREG [Concomitant]
     Dosage: 12.5 MG, 2X/DAY
  7. FLEXERIL [Concomitant]
     Indication: MUSCLE RELAXANT THERAPY
     Dosage: 10 MG, AS NEEDED
  8. LIPITOR [Suspect]
     Indication: MYOCARDIAL INFARCTION
     Dosage: 40 MG, 1X/DAY
     Route: 048
     Dates: start: 20110621
  9. ASPIRIN [Concomitant]
     Dosage: 81 MG, 1X/DAY
  10. MULTI-VITAMINS [Concomitant]
     Dosage: UNK, 1X/DAY
  11. ASCORBIC ACID [Concomitant]
     Dosage: 500 MG, 1X/DAY
  12. WARFARIN [Concomitant]
     Dosage: 5 MG, 1X/DAY

REACTIONS (1)
  - MUSCLE SPASMS [None]
